FAERS Safety Report 8195789-2 (Version None)
Quarter: 2012Q1

REPORT INFORMATION
  Report Type: 
  Country: None (occurrence: None)
  Receive Date: 20120308
  Receipt Date: 20120229
  Transmission Date: 20120608
  Serious: Yes (Hospitalization)
  Sender: FDA-Public Use
  Company Number: US-ASTRAZENECA-2012SE14124

PATIENT
  Sex: Female
  Weight: 74.8 kg

DRUGS (4)
  1. CRESTOR [Suspect]
     Dosage: EVERY DAY
     Route: 048
  2. SYMBICORT [Suspect]
     Indication: ASTHMA
     Dosage: TWO PUFFS BID
     Route: 055
  3. CETIRIZINE HCL [Concomitant]
     Indication: SEASONAL ALLERGY
  4. CITALOPRAM HYDROBROMIDE [Concomitant]
     Indication: FATIGUE

REACTIONS (2)
  - CHOLECYSTITIS [None]
  - KIDNEY INFECTION [None]
